FAERS Safety Report 5942001-8 (Version None)
Quarter: 2008Q4

REPORT INFORMATION
  Report Type: 
  Country: None (occurrence: None)
  Receive Date: 20081105
  Receipt Date: 20081028
  Transmission Date: 20090506
  Serious: Yes (Hospitalization)
  Sender: FDA-Public Use
  Company Number: BG-ASTRAZENECA-2008SE04579

PATIENT
  Age: 62 Year
  Sex: Male
  Weight: 80 kg

DRUGS (6)
  1. CRESTOR [Suspect]
     Indication: MYOCARDIAL ISCHAEMIA
     Route: 048
     Dates: start: 20080910, end: 20080928
  2. AMIODARONE HCL [Concomitant]
     Dosage: 1 TABLET DAILY
     Route: 048
  3. ACENOCOUMAROL [Concomitant]
     Dosage: 1 TABLET DAILY
     Route: 048
  4. NEBIVOLOL HCL [Concomitant]
     Route: 048
  5. DETRALEX [Concomitant]
     Dosage: 1 TABL DAILY
     Route: 048
  6. TRIAMTEREN/HYDROCHLOTHIAZIDE [Concomitant]
     Dosage: 1 TABLET DAILY
     Route: 048

REACTIONS (8)
  - ALANINE AMINOTRANSFERASE INCREASED [None]
  - ASPARTATE AMINOTRANSFERASE INCREASED [None]
  - BLOOD CREATININE INCREASED [None]
  - GAMMA-GLUTAMYLTRANSFERASE INCREASED [None]
  - MUSCULAR WEAKNESS [None]
  - PARAESTHESIA [None]
  - PLEURAL EFFUSION [None]
  - PYREXIA [None]
